FAERS Safety Report 5494921-9 (Version None)
Quarter: 2007Q4

REPORT INFORMATION
  Report Type: 
  Country: None (occurrence: None)
  Receive Date: 20071022
  Receipt Date: 20071008
  Transmission Date: 20080405
  Serious: Yes (Hospitalization)
  Sender: FDA-Public Use
  Company Number: WAES 0710DEU00187

PATIENT
  Age: 77 Year
  Sex: Female

DRUGS (1)
  1. SINGULAIR [Suspect]
     Indication: ASTHMA
     Dosage: 10 MG/DAILY; PO
     Route: 048
     Dates: start: 20070514, end: 20070801

REACTIONS (1)
  - GASTRIC CANCER [None]
